FAERS Safety Report 4644948-1 (Version None)
Quarter: 2005Q2

REPORT INFORMATION
  Report Type: 
  Country: None (occurrence: None)
  Receive Date: 20050426
  Receipt Date: 20050413
  Transmission Date: 20051028
  Serious: Yes (Hospitalization)
  Sender: FDA-Public Use
  Company Number: GBWYE585414APR05

PATIENT
  Sex: Female
  Weight: 72 kg

DRUGS (6)
  1. ENBREL [Suspect]
     Indication: RHEUMATOID ARTHRITIS
     Route: 058
     Dates: start: 20030609
  2. ENBREL [Suspect]
     Route: 058
  3. RAMIPRIL [Concomitant]
     Dosage: UNKNOWN
  4. TRAMADOL HCL [Concomitant]
     Dosage: UNKNOWN
  5. CELEBREX [Concomitant]
     Dosage: UNKNOWN
  6. LOESTRIN 1.5/30 [Concomitant]
     Dosage: UNKNOWN

REACTIONS (1)
  - PILONIDAL SINUS REPAIR [None]
